FAERS Safety Report 23441374 (Version 2)
Quarter: 2025Q2

REPORT INFORMATION
  Report Type: Report from Study
  Country: IT (occurrence: IT)
  Receive Date: 20240125
  Receipt Date: 20250514
  Transmission Date: 20250716
  Serious: Yes (Hospitalization, Other)
  Sender: AUROBINDO
  Company Number: IT-UCBSA-2024001376

PATIENT
  Age: 2 Year
  Sex: Male
  Weight: 17 kg

DRUGS (1)
  1. LEVETIRACETAM [Suspect]
     Active Substance: LEVETIRACETAM
     Indication: PCDH19 gene-related epilepsy
     Route: 065

REACTIONS (4)
  - Hypertensive crisis [Unknown]
  - Hypertonia [Unknown]
  - Drug ineffective for unapproved indication [Unknown]
  - Off label use [Unknown]
